FAERS Safety Report 9494685 (Version 1)
Quarter: 2013Q3

REPORT INFORMATION
  Report Type: Spontaneous
  Country: US (occurrence: US)
  Receive Date: 20130903
  Receipt Date: 20130903
  Transmission Date: 20140515
  Serious: Yes (Other)
  Sender: FDA-Public Use
  Company Number: US-JNJFOC-20130815507

PATIENT
  Age: 46 Year
  Sex: Female
  Weight: 56.7 kg

DRUGS (1)
  1. RISPERDAL CONSTA [Suspect]
     Indication: BIPOLAR DISORDER
     Route: 042
     Dates: start: 201301

REACTIONS (7)
  - Eye swelling [Unknown]
  - Mass [Unknown]
  - Blood chloride increased [Unknown]
  - Swelling face [Unknown]
  - Blister [Unknown]
  - Malaise [Unknown]
  - Incorrect route of drug administration [Unknown]
